FAERS Safety Report 9754387 (Version 1)
Quarter: 2013Q4

REPORT INFORMATION
  Report Type: Report from Study
  Country: IN (occurrence: IN)
  Receive Date: 20131213
  Receipt Date: 20131213
  Transmission Date: 20140711
  Serious: Yes (Hospitalization)
  Sender: FDA-Public Use
  Company Number: PHHY2013IN143991

PATIENT
  Age: 48 Year
  Sex: Male

DRUGS (3)
  1. AFINITOR [Suspect]
     Indication: METASTATIC RENAL CELL CARCINOMA
     Dosage: 5 MG, QD
     Route: 048
     Dates: start: 20130903, end: 20131202
  2. LYCOXY [Concomitant]
     Indication: VITAMIN SUPPLEMENTATION
     Dosage: UNK UKN, UNK
     Route: 048
     Dates: start: 20130612
  3. FERIUM [Suspect]
     Dosage: UNK
     Route: 048
     Dates: start: 20130612

REACTIONS (2)
  - General physical health deterioration [Unknown]
  - Dyspnoea [Not Recovered/Not Resolved]
